FAERS Safety Report 4871643-6 (Version None)
Quarter: 2006Q1

REPORT INFORMATION
  Report Type: 
  Country: None (occurrence: None)
  Receive Date: 20060104
  Receipt Date: 20051223
  Transmission Date: 20060701
  Serious: Yes (Disabling)
  Sender: FDA-Public Use
  Company Number: PHBS2005IT19050

PATIENT
  Age: 76 Year
  Sex: Female

DRUGS (4)
  1. AREDIA [Suspect]
     Indication: METASTASES TO BONE
     Dosage: 90 MG, QMO
     Route: 042
     Dates: start: 20020101, end: 20040101
  2. FEMARA [Concomitant]
     Route: 048
     Dates: start: 20020101, end: 20040101
  3. TAMOXIFEN [Concomitant]
     Dates: start: 20040101
  4. ZOMETA [Suspect]
     Indication: METASTASES TO BONE
     Dosage: 4 MG, QMO
     Dates: start: 20040101, end: 20051221

REACTIONS (1)
  - OSTEOMYELITIS CHRONIC [None]
